FAERS Safety Report 6974585-5 (Version None)
Quarter: 2010Q3

REPORT INFORMATION
  Report Type: 
  Country: None (occurrence: None)
  Receive Date: 20100909
  Receipt Date: 20081216
  Transmission Date: 20110219
  Serious: No
  Sender: FDA-Public Use
  Company Number: US-WYE-H06251308

PATIENT
  Sex: Female
  Weight: 122.13 kg

DRUGS (8)
  1. PRISTIQ [Suspect]
     Indication: DEPRESSION
     Route: 048
     Dates: start: 20080829
  2. PRISTIQ [Suspect]
     Indication: ANXIETY
     Route: 048
     Dates: start: 20080901
  3. PRISTIQ [Suspect]
     Route: 048
     Dates: start: 20080901
  4. HYDROXYZINE EMBONATE [Concomitant]
     Dosage: UNKNOWN
  5. LANOXIN [Concomitant]
     Indication: ATRIAL FIBRILLATION
     Dosage: UNKNOWN
  6. NORPACE [Concomitant]
     Indication: ATRIAL FIBRILLATION
     Dosage: UNKNOWN
  7. ZOLOFT [Concomitant]
     Dosage: UNKNOWN
  8. CLONAZEPAM [Concomitant]
     Dosage: UNKNOWN

REACTIONS (10)
  - ANGER [None]
  - ANXIETY [None]
  - CONDITION AGGRAVATED [None]
  - CRYING [None]
  - DEPRESSION [None]
  - DRUG INEFFECTIVE [None]
  - IRRITABILITY [None]
  - RESTLESSNESS [None]
  - THINKING ABNORMAL [None]
  - VIOLENCE-RELATED SYMPTOM [None]
